FAERS Safety Report 8452190-1 (Version None)
Quarter: 2012Q2

REPORT INFORMATION
  Report Type: 
  Country: None (occurrence: None)
  Receive Date: 20120620
  Receipt Date: 20120612
  Transmission Date: 20120825
  Serious: Yes (Life-Threatening, Hospitalization)
  Sender: FDA-Public Use
  Company Number: DE-GLAXOSMITHKLINE-D0075569A

PATIENT
  Sex: Male

DRUGS (4)
  1. LYRICA [Concomitant]
     Indication: NEUROPATHY PERIPHERAL
     Dosage: 75MG VARIABLE DOSE
     Route: 048
  2. IBUPROFEN [Concomitant]
     Indication: PAIN
     Dosage: 600MG THREE TIMES PER DAY
     Route: 048
  3. VOTRIENT [Suspect]
     Indication: RENAL CELL CARCINOMA
     Dosage: 400MG TWICE PER DAY
     Route: 048
     Dates: start: 20111013, end: 20120413
  4. GLIMEPIRID [Concomitant]
     Indication: DIABETES MELLITUS
     Dosage: 2MG PER DAY
     Route: 048

REACTIONS (2)
  - MUSCLE SPASMS [None]
  - PERICARDIAL EFFUSION [None]
